FAERS Safety Report 12560953 (Version 1)
Quarter: 2016Q3

REPORT INFORMATION
  Report Type: Spontaneous
  Country: US (occurrence: None)
  Receive Date: 20160714
  Receipt Date: 20160714
  Transmission Date: 20161109
  Serious: Yes (Death)
  Sender: FDA-Public Use
  Company Number: None

PATIENT
  Age: 83 Year
  Sex: Female

DRUGS (5)
  1. CARVEDILOL. [Concomitant]
     Active Substance: CARVEDILOL
  2. LORAZEPAM. [Concomitant]
     Active Substance: LORAZEPAM
  3. FUROSEMIDE. [Concomitant]
     Active Substance: FUROSEMIDE
  4. ANXIETY [Concomitant]
  5. THALOMID [Suspect]
     Active Substance: THALIDOMIDE
     Indication: PLASMA CELL MYELOMA
     Route: 048
     Dates: start: 20150330

REACTIONS (6)
  - Acute kidney injury [None]
  - Hypercalcaemia [None]
  - Memory impairment [None]
  - Asthenia [None]
  - Thrombocytopenia [None]
  - Pancytopenia [None]

NARRATIVE: CASE EVENT DATE: 20150429
